FAERS Safety Report 18060651 (Version 1)
Quarter: 2020Q3

REPORT INFORMATION
  Report Type: Spontaneous
  Country: FR (occurrence: FR)
  Receive Date: 20200723
  Receipt Date: 20200723
  Transmission Date: 20201103
  Serious: Yes (Life-Threatening)
  Sender: FDA-Public Use
  Company Number: FR-ROCHE-2647838

PATIENT
  Age: 62 Year
  Sex: Male
  Weight: 95 kg

DRUGS (10)
  1. METFORMINE [Concomitant]
     Active Substance: METFORMIN HYDROCHLORIDE
  2. ROACTEMRA [Suspect]
     Active Substance: TOCILIZUMAB
     Indication: RHEUMATOID ARTHRITIS
     Route: 058
     Dates: start: 201512, end: 20190917
  3. ULTIBRO BREEZHALER [Concomitant]
     Active Substance: GLYCOPYRRONIUM\INDACATEROL
  4. OMEPRAZOLE. [Concomitant]
     Active Substance: OMEPRAZOLE
  5. DAKTARIN [Concomitant]
     Active Substance: MICONAZOLE NITRATE
  6. APRANAX [Concomitant]
     Active Substance: NAPROXEN
  7. PARACETAMOL [Concomitant]
     Active Substance: ACETAMINOPHEN
  8. FLUVASTATIN [Concomitant]
     Active Substance: FLUVASTATIN SODIUM
  9. FLECTOR [Concomitant]
     Active Substance: DICLOFENAC EPOLAMINE
  10. TRULICITY [Concomitant]
     Active Substance: DULAGLUTIDE

REACTIONS (2)
  - Septic shock [Recovered/Resolved]
  - Immunosuppression [Recovered/Resolved]

NARRATIVE: CASE EVENT DATE: 20190914
